FAERS Safety Report 7978523-8 (Version None)
Quarter: 2011Q4

REPORT INFORMATION
  Report Type: 
  Country: None (occurrence: None)
  Receive Date: 20111214
  Receipt Date: 20111206
  Transmission Date: 20120403
  Serious: Yes (Other)
  Sender: FDA-Public Use
  Company Number: IT-JNJFOC-20111204808

PATIENT
  Age: 15 Year
  Sex: Male

DRUGS (2)
  1. CHLORPROMAZINE [Suspect]
     Indication: ILL-DEFINED DISORDER
     Dosage: HALF BOTTLE
     Route: 048
     Dates: start: 20111206
  2. HALDOL [Suspect]
     Indication: PRODUCT USED FOR UNKNOWN INDICATION
     Route: 048
     Dates: start: 20111206

REACTIONS (4)
  - SELF INJURIOUS BEHAVIOUR [None]
  - MULTIPLE DRUG OVERDOSE INTENTIONAL [None]
  - INJURY [None]
  - HEAD INJURY [None]
